FAERS Safety Report 23919216 (Version 1)
Quarter: 2024Q2

REPORT INFORMATION
  Report Type: Spontaneous
  Country: US (occurrence: US)
  Receive Date: 20240530
  Receipt Date: 20240530
  Transmission Date: 20240716
  Serious: Yes (Hospitalization)
  Sender: FDA-Public Use
  Company Number: US-STRIDES ARCOLAB LIMITED-2024SP006089

PATIENT

DRUGS (17)
  1. COLCHICINE [Suspect]
     Active Substance: COLCHICINE
     Indication: Dressler^s syndrome
     Dosage: UNK
     Route: 065
  2. CYCLOSPORINE [Suspect]
     Active Substance: CYCLOSPORINE
     Indication: Kawasaki^s disease
     Dosage: UNK
     Route: 065
  3. ASPIRIN [Concomitant]
     Active Substance: ASPIRIN
     Indication: Thrombosis prophylaxis
     Dosage: 55 MG/KG/DAY
     Route: 065
  4. CLOPIDOGREL [Concomitant]
     Active Substance: CLOPIDOGREL BISULFATE
     Indication: Thrombosis prophylaxis
     Dosage: UNK
     Route: 065
  5. Immunoglobulin [Concomitant]
     Indication: Kawasaki^s disease
     Dosage: UNK
     Route: 042
  6. INFLIXIMAB [Concomitant]
     Active Substance: INFLIXIMAB
     Indication: Coronary artery aneurysm
     Dosage: 10 MILLIGRAM/KILOGRAM (RECEIVED SINGLE DOSE ON DAY 5)
     Route: 065
  7. HEPARIN [Concomitant]
     Active Substance: HEPARIN SODIUM
     Indication: Coronary artery aneurysm
     Dosage: UNK
     Route: 042
  8. HEPARIN [Concomitant]
     Active Substance: HEPARIN SODIUM
     Indication: Thrombosis prophylaxis
  9. CAPTOPRIL [Concomitant]
     Active Substance: CAPTOPRIL
     Indication: Myocardial infarction
     Dosage: UNK
     Route: 065
  10. CEFTRIAXONE [Concomitant]
     Active Substance: CEFTRIAXONE\CEFTRIAXONE SODIUM
     Indication: Antibiotic therapy
     Dosage: UNK
     Route: 065
  11. VANCOMYCIN [Concomitant]
     Active Substance: VANCOMYCIN
     Indication: Antibiotic therapy
     Dosage: UNK
     Route: 065
  12. NITROGLYCERIN [Concomitant]
     Active Substance: NITROGLYCERIN
     Indication: Coronary artery thrombosis
     Dosage: UNK
     Route: 065
  13. BIVALIRUDIN [Concomitant]
     Active Substance: BIVALIRUDIN
     Indication: Coronary artery thrombosis
     Dosage: UNK
     Route: 065
  14. PROPRANOLOL [Concomitant]
     Active Substance: PROPRANOLOL HYDROCHLORIDE
     Indication: Myocardial infarction
     Dosage: UNK
     Route: 065
  15. SPIRONOLACTONE [Concomitant]
     Active Substance: SPIRONOLACTONE
     Indication: Myocardial infarction
     Dosage: UNK
     Route: 065
  16. METHYLPREDNISOLONE [Concomitant]
     Active Substance: METHYLPREDNISOLONE
     Indication: Kawasaki^s disease
     Dosage: UNK
     Route: 065
  17. ANAKINRA [Concomitant]
     Active Substance: ANAKINRA
     Indication: Pericardial effusion
     Dosage: UNK
     Route: 065

REACTIONS (2)
  - Gastrointestinal disorder [Unknown]
  - Off label use [Unknown]
